FAERS Safety Report 12760250 (Version 2)
Quarter: 2016Q4

REPORT INFORMATION
  Report Type: Spontaneous
  Country: US (occurrence: US)
  Receive Date: 20160919
  Receipt Date: 20161006
  Transmission Date: 20170207
  Serious: Yes (Congenital Anomaly, Other)
  Sender: FDA-Public Use
  Company Number: US-PFIZER INC-2016437483

PATIENT
  Sex: Male

DRUGS (1)
  1. ZOLOFT [Suspect]
     Active Substance: SERTRALINE HYDROCHLORIDE
     Dosage: UNK
     Route: 064

REACTIONS (4)
  - Cleft lip [Unknown]
  - Cleft palate [Unknown]
  - Maternal exposure during pregnancy [Unknown]
  - Hypoplastic left heart syndrome [Unknown]

NARRATIVE: CASE EVENT DATE: 20110812
